FAERS Safety Report 7618054-8 (Version None)
Quarter: 2011Q3

REPORT INFORMATION
  Report Type: 
  Country: None (occurrence: None)
  Receive Date: 20110718
  Receipt Date: 20110707
  Transmission Date: 20111222
  Serious: Yes (Hospitalization)
  Sender: FDA-Public Use
  Company Number: US-US-EMD SERONO, INC.-7029825

PATIENT
  Sex: Male

DRUGS (4)
  1. REBIF [Suspect]
     Indication: PRODUCT USED FOR UNKNOWN INDICATION
     Dates: start: 20020601, end: 20080201
  2. REBIF [Suspect]
     Route: 058
     Dates: start: 20101123
  3. REBIF [Suspect]
     Route: 058
  4. REBIF [Suspect]
     Route: 058
     Dates: start: 20100101

REACTIONS (6)
  - CONVULSION [None]
  - IRRITABILITY [None]
  - INSOMNIA [None]
  - MOOD SWINGS [None]
  - MEMORY IMPAIRMENT [None]
  - ANGER [None]
